FAERS Safety Report 25191764 (Version 2)
Quarter: 2025Q2

REPORT INFORMATION
  Report Type: Report from Study
  Country: GB (occurrence: GB)
  Receive Date: 20250414
  Receipt Date: 20250616
  Transmission Date: 20250717
  Serious: No
  Sender: SANDOZ
  Company Number: GB-SANDOZ-SDZ2025GB022438

PATIENT
  Sex: Female

DRUGS (1)
  1. ERELZI [Suspect]
     Active Substance: ETANERCEPT-SZZS
     Indication: Rheumatoid arthritis
     Dosage: 25 MG, BIW
     Route: 058

REACTIONS (2)
  - Osteoarthritis [Unknown]
  - Fatigue [Unknown]
